FAERS Safety Report 6751653-4 (Version None)
Quarter: 2010Q2

REPORT INFORMATION
  Report Type: 
  Country: None (occurrence: None)
  Receive Date: 20100602
  Receipt Date: 20100528
  Transmission Date: 20101027
  Serious: Yes (Other)
  Sender: FDA-Public Use
  Company Number: A0860445A

PATIENT
  Sex: Female

DRUGS (3)
  1. PAXIL [Suspect]
     Indication: DRUG USE FOR UNKNOWN INDICATION
     Dosage: 40MG PER DAY
     Route: 048
     Dates: start: 20100101
  2. LITHIUM CARBONATE [Concomitant]
     Route: 065
  3. PSYCHOTROPIC MEDICATIONS [Concomitant]
     Route: 065

REACTIONS (4)
  - HAEMORRHAGE [None]
  - MENORRHAGIA [None]
  - MENSTRUAL DISORDER [None]
  - POLYMENORRHOEA [None]
